FAERS Safety Report 5719282-9 (Version None)
Quarter: 2008Q2

REPORT INFORMATION
  Report Type: 
  Country: None (occurrence: None)
  Receive Date: 20080428
  Receipt Date: 20080422
  Transmission Date: 20081010
  Serious: Yes (Life-Threatening, Hospitalization)
  Sender: FDA-Public Use
  Company Number: PHEH2008US04005

PATIENT
  Sex: Male

DRUGS (2)
  1. EXJADE [Suspect]
     Route: 065
  2. VIDAZA [Suspect]

REACTIONS (5)
  - HAEMOPTYSIS [None]
  - LEUKOCYTOCLASTIC VASCULITIS [None]
  - PLATELET COUNT DECREASED [None]
  - PULMONARY ALVEOLAR HAEMORRHAGE [None]
  - VASCULITIC RASH [None]
